FAERS Safety Report 4388696-4 (Version None)
Quarter: 2004Q2

REPORT INFORMATION
  Report Type: 
  Country: None (occurrence: None)
  Receive Date: 20040624
  Receipt Date: 20040609
  Transmission Date: 20050107
  Serious: Yes (Disabling, Other)
  Sender: FDA-Public Use
  Company Number: 2004-DE-03273DE

PATIENT
  Sex: Female

DRUGS (1)
  1. AGGRENOX (KAR) (ACETYLSALICYLIC ACID, DIPHYRIDAMOLE) [Suspect]
     Indication: TRANSIENT ISCHAEMIC ATTACK
     Dosage: SEE IMAGE
     Route: 048

REACTIONS (3)
  - DEPERSONALISATION [None]
  - DIZZINESS [None]
  - SOMNOLENCE [None]
